FAERS Safety Report 16285858 (Version 1)
Quarter: 2019Q2

REPORT INFORMATION
  Report Type: Report from Study
  Country: US (occurrence: US)
  Receive Date: 20190508
  Receipt Date: 20190508
  Transmission Date: 20190711
  Serious: No
  Sender: FDA-Public Use
  Company Number: US-IPSEN BIOPHARMACEUTICALS, INC.-2019-03252

PATIENT
  Sex: Female

DRUGS (2)
  1. SOMATULINE DEPOT [Suspect]
     Active Substance: LANREOTIDE ACETATE
     Indication: ECTOPIC HORMONE SECRETION
  2. SOMATULINE DEPOT [Suspect]
     Active Substance: LANREOTIDE ACETATE
     Indication: NEUROENDOCRINE TUMOUR
     Dosage: 120 MG/0.5 ML (UPPER OUTER BUTTOCKS, ROTATE BETWEEN SIDES)
     Route: 058
     Dates: start: 20190116

REACTIONS (3)
  - Malaise [Unknown]
  - Product dose omission [Unknown]
  - Adverse event [Unknown]
